FAERS Safety Report 20143675 (Version 1)
Quarter: 2021Q4

REPORT INFORMATION
  Report Type: Spontaneous
  Country: CA (occurrence: CA)
  Receive Date: 20211203
  Receipt Date: 20211203
  Transmission Date: 20220303
  Serious: Yes (Death, Hospitalization, Other)
  Sender: FDA-Public Use
  Company Number: CA-VIIV HEALTHCARE LIMITED-CA2021AMR246832

PATIENT
  Sex: Male

DRUGS (3)
  1. DOLUTEGRAVIR [Suspect]
     Active Substance: DOLUTEGRAVIR
     Indication: Product used for unknown indication
     Dosage: 1 DF, BID
     Route: 065
  2. PIFELTRO [Suspect]
     Active Substance: DORAVIRINE
     Indication: Product used for unknown indication
     Dosage: 1 DF, BID
     Route: 048
  3. TRUVADA [Suspect]
     Active Substance: EMTRICITABINE\TENOFOVIR DISOPROXIL FUMARATE
     Indication: Product used for unknown indication
     Dosage: 1 DF, BID
     Route: 065

REACTIONS (9)
  - Death [Fatal]
  - Adverse event [Fatal]
  - Decreased appetite [Fatal]
  - Depression [Fatal]
  - Hepatic failure [Fatal]
  - Weight increased [Fatal]
  - Incorrect dose administered [Fatal]
  - Product prescribing issue [Fatal]
  - Therapeutic product effect incomplete [Fatal]
